FAERS Safety Report 6130439-8 (Version None)
Quarter: 2009Q1

REPORT INFORMATION
  Report Type: 
  Country: None (occurrence: None)
  Receive Date: 20090324
  Receipt Date: 20090309
  Transmission Date: 20090719
  Serious: Yes (Life-Threatening, Hospitalization, Disabling, Other)
  Sender: FDA-Public Use
  Company Number: FR-GENENTECH-269616

PATIENT
  Sex: Female
  Weight: 70 kg

DRUGS (6)
  1. LUCENTIS [Suspect]
     Indication: MACULAR DEGENERATION
     Dosage: 1 DF, SINGLE
     Route: 031
     Dates: start: 20081002
  2. VASTAREL [Concomitant]
     Indication: DRUG USE FOR UNKNOWN INDICATION
  3. ESCITALOPRAM [Concomitant]
     Indication: DRUG USE FOR UNKNOWN INDICATION
  4. ESTRADIOL [Concomitant]
     Indication: DRUG USE FOR UNKNOWN INDICATION
  5. PROGESTERONE [Concomitant]
     Indication: DRUG USE FOR UNKNOWN INDICATION
  6. LEXOMIL [Concomitant]
     Indication: DRUG USE FOR UNKNOWN INDICATION

REACTIONS (1)
  - ISCHAEMIC STROKE [None]
